FAERS Safety Report 4334829-5 (Version None)
Quarter: 2004Q2

REPORT INFORMATION
  Report Type: 
  Country: None (occurrence: None)
  Receive Date: 20040407
  Receipt Date: 20040407
  Transmission Date: 20050107
  Serious: Yes (Other)
  Sender: FDA-Public Use
  Company Number: None

PATIENT
  Age: 80 Year
  Sex: Male
  Weight: 80.2867 kg

DRUGS (1)
  1. MEMANTINE HCL [Suspect]
     Indication: DEMENTIA ALZHEIMER'S TYPE
     Dosage: 10 MG PO BID
     Route: 048
     Dates: start: 20040212, end: 20040316

REACTIONS (3)
  - AGGRESSION [None]
  - AGITATION [None]
  - IMPULSIVE BEHAVIOUR [None]
